FAERS Safety Report 19630773 (Version 1)
Quarter: 2021Q3

REPORT INFORMATION
  Report Type: Spontaneous
  Country: US (occurrence: US)
  Receive Date: 20210729
  Receipt Date: 20210729
  Transmission Date: 20211014
  Serious: Yes (Other)
  Sender: FDA-Public Use
  Company Number: US-REGENERON PHARMACEUTICALS, INC.-2021-70287

PATIENT

DRUGS (2)
  1. EYLEA [Suspect]
     Active Substance: AFLIBERCEPT
     Dosage: 2 MG, MONTHLY, LEFT EYE, THIRD DOSE
     Route: 031
     Dates: start: 202012, end: 202012
  2. EYLEA [Suspect]
     Active Substance: AFLIBERCEPT
     Indication: NEOVASCULAR AGE-RELATED MACULAR DEGENERATION
     Dosage: 2 MG, MONTHLY, LEFT EYE
     Route: 031
     Dates: start: 202010, end: 202012

REACTIONS (4)
  - Refusal of treatment by patient [Unknown]
  - Endophthalmitis [Unknown]
  - Retinal detachment [Unknown]
  - Neovascular age-related macular degeneration [Unknown]
